FAERS Safety Report 13965129 (Version 1)
Quarter: 2017Q3

REPORT INFORMATION
  Report Type: Spontaneous
  Country: US (occurrence: US)
  Receive Date: 20170913
  Receipt Date: 20170913
  Transmission Date: 20171128
  Serious: No
  Sender: FDA-Public Use
  Company Number: US-TEVA-740219USA

PATIENT
  Sex: Female

DRUGS (2)
  1. CLOTRIMAZOLE. [Suspect]
     Active Substance: CLOTRIMAZOLE
     Indication: TINEA INFECTION
     Dosage: ONCE DAILY
     Route: 061
     Dates: start: 20170119
  2. IMMUNOGLOBULIN (IVIG) [Concomitant]
     Active Substance: HUMAN IMMUNOGLOBULIN G
     Indication: IMMUNODEFICIENCY COMMON VARIABLE
     Dosage: EVERY 21 DAYS

REACTIONS (12)
  - Back pain [Unknown]
  - Intentional product misuse [Unknown]
  - Influenza like illness [Unknown]
  - Hyperhidrosis [Unknown]
  - Chromaturia [Unknown]
  - Liver disorder [Unknown]
  - Vomiting [Unknown]
  - Nausea [Unknown]
  - Fatigue [Unknown]
  - Dyspepsia [Unknown]
  - Condition aggravated [Unknown]
  - Drug ineffective [Unknown]

NARRATIVE: CASE EVENT DATE: 2017
